FAERS Safety Report 5274708-2 (Version None)
Quarter: 2007Q1

REPORT INFORMATION
  Report Type: 
  Country: None (occurrence: None)
  Receive Date: 20070320
  Receipt Date: 20070309
  Transmission Date: 20070707
  Serious: Yes (Other)
  Sender: FDA-Public Use
  Company Number: 35110

PATIENT
  Sex: 0

DRUGS (1)
  1. PROPOFOL [Suspect]
     Indication: SEDATION

REACTIONS (3)
  - CIRCUMSTANCE OR INFORMATION CAPABLE OF LEADING TO MEDICATION ERROR [None]
  - INTERCEPTED DRUG ADMINISTRATION ERROR [None]
  - MEDICATION ERROR [None]
